FAERS Safety Report 8312568-3 (Version None)
Quarter: 2012Q2

REPORT INFORMATION
  Report Type: 
  Country: None (occurrence: None)
  Receive Date: 20120424
  Receipt Date: 20120417
  Transmission Date: 20120825
  Serious: Yes (Hospitalization)
  Sender: FDA-Public Use
  Company Number: DKLU1078482

PATIENT
  Age: 11 Month
  Sex: Male
  Weight: 6 kg

DRUGS (2)
  1. SABRIL [Suspect]
     Indication: EPILEPSY
     Dosage: 300 MG MILLIGRAM(S), 2 IN 1 D, ORAL
     Route: 048
     Dates: start: 20120125
  2. SABRIL [Suspect]
     Indication: INFANTILE SPASMS
     Dosage: 300 MG MILLIGRAM(S), 2 IN 1 D, ORAL
     Route: 048
     Dates: start: 20120125

REACTIONS (1)
  - RESPIRATORY DISORDER [None]
